FAERS Safety Report 10993743 (Version 1)
Quarter: 2015Q2

REPORT INFORMATION
  Report Type: Spontaneous
  Country: CN (occurrence: None)
  Receive Date: 20150403
  Receipt Date: 20150403
  Transmission Date: 20150821
  Serious: Yes (Hospitalization)
  Sender: FDA-Public Use
  Company Number: ABR_02129_2015

PATIENT
  Age: 9 Year
  Sex: Female

DRUGS (1)
  1. LAMOTRIGINE (LAMOTRIGINE) [Suspect]
     Active Substance: LAMOTRIGINE
     Indication: EPILEPSY
     Dosage: A DOUBLE DOSE
     Route: 048

REACTIONS (4)
  - Obliterative bronchiolitis [None]
  - Stevens-Johnson syndrome [None]
  - Extra dose administered [None]
  - Pneumothorax [None]

NARRATIVE: CASE EVENT DATE: 20100726
